FAERS Safety Report 6522089-6 (Version None)
Quarter: 2009Q4

REPORT INFORMATION
  Report Type: 
  Country: None (occurrence: None)
  Receive Date: 20091230
  Receipt Date: 20091223
  Transmission Date: 20100525
  Serious: Yes (Hospitalization)
  Sender: FDA-Public Use
  Company Number: PHHO2009US15453

PATIENT
  Sex: Female
  Weight: 67.7 kg

DRUGS (6)
  1. CERTICAN [Suspect]
     Indication: LIVER TRANSPLANT
     Dosage: 1 MG, BID
     Route: 048
     Dates: start: 20091125
  2. TACROLIMUS [Suspect]
     Indication: LIVER TRANSPLANT
     Dosage: 3.5 MG, Q12H
     Route: 048
     Dates: start: 20071027
  3. TACROLIMUS [Suspect]
     Dosage: 1.5 MG
     Route: 048
  4. PREDNISONE [Concomitant]
     Indication: LIVER TRANSPLANT
     Dosage: 12.5 MG
     Route: 048
     Dates: start: 20091024
  5. FLUCONAZOLE [Concomitant]
     Indication: PROPHYLAXIS
     Dosage: 400 MG
     Route: 048
     Dates: start: 20091024, end: 20091206
  6. SOLU-MEDROL [Concomitant]
     Indication: LIVER TRANSPLANT

REACTIONS (6)
  - ABDOMINAL PAIN [None]
  - ANGINA PECTORIS [None]
  - EPSTEIN-BARR VIRUS ASSOCIATED LYMPHOPROLIFERATIVE DISORDER [None]
  - HEPATITIS C [None]
  - LIVER FUNCTION TEST ABNORMAL [None]
  - TRANSPLANT REJECTION [None]
